FAERS Safety Report 24754789 (Version 1)
Quarter: 2024Q4

REPORT INFORMATION
  Report Type: Spontaneous
  Country: US (occurrence: US)
  Receive Date: 20241219
  Receipt Date: 20241219
  Transmission Date: 20250115
  Serious: No
  Sender: GREER
  Company Number: US-STALCOR-2024-AER-02829

PATIENT
  Age: 5 Year
  Sex: Male
  Weight: 19.4 kg

DRUGS (4)
  1. PEANUT [Suspect]
     Active Substance: PEANUT
     Indication: Skin test
     Dates: start: 20240621
  2. ALBUTEROL [Concomitant]
     Active Substance: ALBUTEROL
     Indication: Product used for unknown indication
     Dosage: INHALER
  3. BECLOMETHASONE INHALER [Concomitant]
     Indication: Product used for unknown indication
     Dosage: INHALER
  4. CETIRIZINE [Concomitant]
     Active Substance: CETIRIZINE HYDROCHLORIDE
     Indication: Product used for unknown indication

REACTIONS (2)
  - No adverse event [Recovered/Resolved]
  - Drug ineffective [Recovered/Resolved]

NARRATIVE: CASE EVENT DATE: 20240621
